FAERS Safety Report 7073217-8 (Version None)
Quarter: 2010Q4

REPORT INFORMATION
  Report Type: 
  Country: None (occurrence: None)
  Receive Date: 20101029
  Receipt Date: 20100511
  Transmission Date: 20110411
  Serious: Yes (Hospitalization)
  Sender: FDA-Public Use
  Company Number: A0859139A

PATIENT
  Age: 46 Year
  Sex: Female

DRUGS (19)
  1. ADVAIR DISKUS 100/50 [Suspect]
     Indication: CHRONIC OBSTRUCTIVE PULMONARY DISEASE
     Dosage: 1PUFF TWICE PER DAY
     Route: 055
     Dates: start: 20070501
  2. SPIRIVA [Concomitant]
  3. ALBUTEROL [Concomitant]
  4. XOPENEX [Concomitant]
  5. AMBIEN [Concomitant]
  6. LIPITOR [Concomitant]
  7. NORVASC [Concomitant]
  8. HYDROCHLOROTHIAZIDE [Concomitant]
  9. OXYBUTYNIN [Concomitant]
  10. NEXIUM [Concomitant]
  11. DOXYCYCLINE [Concomitant]
  12. CIPRO [Concomitant]
  13. BENZTROPINE MESYLATE [Concomitant]
  14. POTASSIUM CHLORIDE [Concomitant]
  15. TRAZODONE [Concomitant]
  16. CELEXA [Concomitant]
  17. FLEXERIL [Concomitant]
  18. SYSTANE [Concomitant]
  19. HYDROCODONE [Concomitant]

REACTIONS (1)
  - PNEUMONIA [None]
